FAERS Safety Report 7989552-2 (Version None)
Quarter: 2011Q4

REPORT INFORMATION
  Report Type: 
  Country: None (occurrence: None)
  Receive Date: 20111219
  Receipt Date: 20110520
  Transmission Date: 20120403
  Serious: No
  Sender: FDA-Public Use
  Company Number: US-ASTRAZENECA-2011SE16832

PATIENT
  Age: 62 Year
  Sex: Female
  Weight: 56.7 kg

DRUGS (2)
  1. CRESTOR [Suspect]
     Indication: BLOOD CHOLESTEROL INCREASED
     Route: 048
     Dates: start: 20110319, end: 20110301
  2. CRESTOR [Suspect]
     Route: 048
     Dates: start: 20110301, end: 20110415

REACTIONS (7)
  - OEDEMA PERIPHERAL [None]
  - FATIGUE [None]
  - ASTHENIA [None]
  - FEELING DRUNK [None]
  - DIZZINESS [None]
  - MUSCLE SPASMS [None]
  - PAIN IN EXTREMITY [None]
